FAERS Safety Report 9970004 (Version 1)
Quarter: 2014Q1

REPORT INFORMATION
  Report Type: Spontaneous
  Country: FR (occurrence: None)
  Receive Date: 20140304
  Receipt Date: 20140304
  Transmission Date: 20141002
  Serious: Yes (Other)
  Sender: FDA-Public Use
  Company Number: 7270233

PATIENT
  Age: 65 Year
  Sex: Female

DRUGS (6)
  1. LEVOTHYROX (LEVOTHYROXINE SODIUM) (100 MICROGRAM, TABLET) (LEVOTHYROXINE SODIUM) [Suspect]
     Indication: THYROID THERAPY
     Route: 048
     Dates: start: 2004
  2. VICTRELIS ( BOCEPREVIR) CAPSULE [Suspect]
     Indication: HEPATITIS C
     Dosage: 2400 MG (800 MG, 3 IN 1 D), ORAL
     Route: 048
     Dates: start: 20131118
  3. VIRAFERONPEG (PEGINTERFERON ALFA-2B) (INJECTION) (PEGINTERFERON ALFA-2B) [Suspect]
     Indication: HEPATITIS C
     Dosage: 120 MCG, CYCLE, SUBCUTANEOUS
     Route: 058
     Dates: start: 20131021
  4. REBETOL [Suspect]
     Indication: HEPATITIS C
     Dosage: 1 GM (2-1-3) , ORAL
     Route: 048
     Dates: start: 20131021
  5. EXFORGE (AMLODIPNE W/VALSARTAN) (AMLODIPINE, VALSARTAN) [Concomitant]
  6. SEROPLEX (ESCITALOPRAM OXALATE) (ESCITALOPRAM OXALATE) [Concomitant]

REACTIONS (2)
  - Drug interaction [None]
  - Blood thyroid stimulating hormone increased [None]
